FAERS Safety Report 8881692 (Version 2)
Quarter: 2012Q4

REPORT INFORMATION
  Report Type: 
  Country: US (occurrence: US)
  Receive Date: 20121102
  Receipt Date: 20121213
  Transmission Date: 20130627
  Serious: Yes (Death)
  Sender: FDA-Public Use
  Company Number: US-CELGENEUS-163-21880-12103706

PATIENT
  Age: 57 Year
  Sex: Female
  Weight: 55 kg

DRUGS (15)
  1. REVLIMID [Suspect]
     Indication: NON-HODGKIN^S LYMPHOMA
     Dosage: 25 Milligram
     Route: 048
     Dates: start: 20121012, end: 2012
  2. PREDNISONE [Concomitant]
     Indication: IMMUNOSUPPRESSION
     Dosage: 60 Milligram
     Route: 065
  3. SYNTHROID [Concomitant]
     Indication: DRUG USE FOR UNKNOWN INDICATION
     Dosage: 50 Microgram
     Route: 048
  4. SERTRALINE [Concomitant]
     Indication: DRUG USE FOR UNKNOWN INDICATION
     Dosage: 150 Milligram
     Route: 048
  5. ALLOPURINOL [Concomitant]
     Indication: DRUG USE FOR UNKNOWN INDICATION
     Dosage: 300 Milligram
     Route: 065
  6. LIPITOR [Concomitant]
     Indication: DRUG USE FOR UNKNOWN INDICATION
     Dosage: 20 Milligram
     Route: 065
  7. FAMCICLOVIR [Concomitant]
     Indication: DRUG USE FOR UNKNOWN INDICATION
     Dosage: 1000 Milligram
     Route: 065
  8. BACTRIM [Concomitant]
     Indication: DRUG USE FOR UNKNOWN INDICATION
     Dosage: single strength
     Route: 065
  9. VITAMIN D [Concomitant]
     Indication: DRUG USE FOR UNKNOWN INDICATION
     Route: 065
  10. MAGNESIUM [Concomitant]
     Indication: DRUG USE FOR UNKNOWN INDICATION
     Dosage: 400 Milligram
     Route: 065
  11. PRILOSEC [Concomitant]
     Indication: DRUG USE FOR UNKNOWN INDICATION
     Route: 065
  12. CLONAZEPAM [Concomitant]
     Indication: ANXIETY
     Dosage: .5 Milligram
     Route: 065
  13. OXYCODONE [Concomitant]
     Indication: PAIN
     Dosage: 10 Milligram
     Route: 065
  14. TRAZODONE [Concomitant]
     Indication: SLEEP DISORDER
     Dosage: 50 Milligram
     Route: 065
  15. PROTONIX [Concomitant]
     Indication: DRUG USE FOR UNKNOWN INDICATION
     Dosage: 40 Milligram
     Route: 065

REACTIONS (1)
  - T-cell lymphoma [Fatal]
